FAERS Safety Report 8941570 (Version 1)
Quarter: 2012Q4

REPORT INFORMATION
  Report Type: 
  Country: JP (occurrence: JP)
  Receive Date: 20121203
  Receipt Date: 20121203
  Transmission Date: 20130627
  Serious: Yes (Hospitalization)
  Sender: FDA-Public Use
  Company Number: JP-PFIZER INC-2012300741

PATIENT
  Age: 4 None
  Sex: Female

DRUGS (1)
  1. NORVASC OD [Suspect]
     Dosage: UNK
     Route: 048

REACTIONS (1)
  - Subarachnoid haemorrhage [Unknown]
